FAERS Safety Report 6888668-1 (Version None)
Quarter: 2010Q3

REPORT INFORMATION
  Report Type: 
  Country: None (occurrence: None)
  Receive Date: 20100730
  Receipt Date: 20071023
  Transmission Date: 20110219
  Serious: No
  Sender: FDA-Public Use
  Company Number: US-PFIZER INC-2007022458

PATIENT
  Sex: Female
  Weight: 61.69 kg

DRUGS (2)
  1. LIPITOR [Suspect]
     Indication: HYPERLIPIDAEMIA
     Route: 048
     Dates: start: 20050201
  2. NEXIUM [Concomitant]
     Route: 048

REACTIONS (1)
  - GASTROINTESTINAL DISORDER [None]
